FAERS Safety Report 4378825-0 (Version None)
Quarter: 2004Q2

REPORT INFORMATION
  Report Type: 
  Country: None (occurrence: None)
  Receive Date: 20040610
  Receipt Date: 20040601
  Transmission Date: 20050107
  Serious: Yes (Life-Threatening, Other)
  Sender: FDA-Public Use
  Company Number: DE-JNJFOC-20040600683

PATIENT
  Age: 26 Year
  Sex: Female

DRUGS (2)
  1. REMICADE (INFLIXIMAB, RECOMBINANT) LYOPHILIZED POWDER [Suspect]
     Indication: CROHN'S DISEASE
     Dosage: 5 MG/KG, 2 IN 1 WEEK, INTRAVENOUS
     Route: 042
     Dates: start: 20040401, end: 20040601
  2. IMMUSEK (ALL OTHER THERAPEUTIC PRODUCTS) [Concomitant]

REACTIONS (6)
  - DRUG HYPERSENSITIVITY [None]
  - DYSPNOEA [None]
  - EXANTHEM [None]
  - INFUSION RELATED REACTION [None]
  - NAUSEA [None]
  - VOMITING [None]
